FAERS Safety Report 25072009 (Version 3)
Quarter: 2025Q1

REPORT INFORMATION
  Report Type: Report from Study
  Country: GB (occurrence: GB)
  Receive Date: 20250313
  Receipt Date: 20250324
  Transmission Date: 20250409
  Serious: Yes (Hospitalization)
  Sender: JOHNSON AND JOHNSON
  Company Number: GB-BAYER-2025A032869

PATIENT
  Age: 58 Year
  Sex: Female

DRUGS (1)
  1. ILOPROST [Suspect]
     Active Substance: ILOPROST
     Indication: Pulmonary hypertension
     Route: 055
     Dates: start: 20230120

REACTIONS (2)
  - Hospitalisation [Not Recovered/Not Resolved]
  - Device operational issue [Unknown]

NARRATIVE: CASE EVENT DATE: 20250301
